FAERS Safety Report 6083820-X (Version None)
Quarter: 2009Q1

REPORT INFORMATION
  Report Type: 
  Country: None (occurrence: None)
  Receive Date: 20090217
  Receipt Date: 20090217
  Transmission Date: 20090719
  Serious: Yes (Other)
  Sender: FDA-Public Use
  Company Number: None

PATIENT
  Age: 64 Year
  Sex: Female

DRUGS (1)
  1. HYDROCODONE BITARTRATE + ACETAMINOPHEN [Suspect]
     Indication: OSTEOARTHRITIS
     Dosage: 10/325 MG ONE QID PO ONE DOSE
     Route: 048

REACTIONS (2)
  - PRODUCT QUALITY ISSUE [None]
  - PRURITUS [None]
